FAERS Safety Report 13257082 (Version 1)
Quarter: 2017Q1

REPORT INFORMATION
  Report Type: Spontaneous
  Country: US (occurrence: US)
  Receive Date: 20170221
  Receipt Date: 20170221
  Transmission Date: 20170428
  Serious: No
  Sender: FDA-Public Use
  Company Number: US-ALLERGAN-1638369US

PATIENT
  Sex: Female
  Weight: 61.22 kg

DRUGS (1)
  1. FML [Suspect]
     Active Substance: FLUOROMETHOLONE
     Indication: EYE IRRITATION
     Dosage: UNK

REACTIONS (3)
  - Off label use [Unknown]
  - Eye irritation [Not Recovered/Not Resolved]
  - Eye swelling [Not Recovered/Not Resolved]
